FAERS Safety Report 9159895 (Version 1)
Quarter: 2013Q1

REPORT INFORMATION
  Report Type: Spontaneous
  Country: IN (occurrence: None)
  Receive Date: 20130220
  Receipt Date: 20130220
  Transmission Date: 20140127
  Serious: Yes (Life-Threatening, Hospitalization, Other)
  Sender: FDA-Public Use
  Company Number: 2013P1002221

PATIENT
  Age: 24 Year
  Sex: Male

DRUGS (2)
  1. PHENYTOIN [Suspect]
     Indication: EPILEPSY
  2. PHENOBARBITAL [Suspect]
     Indication: EPILEPSY

REACTIONS (7)
  - Toxicity to various agents [None]
  - Overdose [None]
  - Suicide attempt [None]
  - Loss of consciousness [None]
  - Pulmonary oedema [None]
  - Impulsive behaviour [None]
  - Cognitive disorder [None]
